FAERS Safety Report 13635279 (Version 1)
Quarter: 2017Q2

REPORT INFORMATION
  Report Type: Spontaneous
  Country: US (occurrence: US)
  Receive Date: 20170531
  Receipt Date: 20170531
  Transmission Date: 20170830
  Serious: No
  Sender: FDA-Public Use
  Company Number: US-ASTELLAS-1709639

PATIENT
  Sex: Male

DRUGS (5)
  1. TARCEVA [Suspect]
     Active Substance: ERLOTINIB HYDROCHLORIDE
     Route: 048
     Dates: start: 20160109
  2. TARCEVA [Suspect]
     Active Substance: ERLOTINIB HYDROCHLORIDE
     Indication: LUNG NEOPLASM MALIGNANT
     Route: 048
     Dates: start: 20160109, end: 20160311
  3. TARCEVA [Suspect]
     Active Substance: ERLOTINIB HYDROCHLORIDE
     Route: 048
     Dates: start: 20160312
  4. VIBRAMYCIN [Concomitant]
     Active Substance: DOXYCYCLINE
  5. CALENDULA [Concomitant]

REACTIONS (7)
  - Burning sensation [Unknown]
  - Rash [Unknown]
  - Fatigue [Unknown]
  - Rash generalised [Unknown]
  - Skin exfoliation [Unknown]
  - Pruritus [Unknown]
  - Alopecia [Unknown]
